FAERS Safety Report 8053065-2 (Version None)
Quarter: 2012Q1

REPORT INFORMATION
  Report Type: 
  Country: None (occurrence: None)
  Receive Date: 20120118
  Receipt Date: 20120113
  Transmission Date: 20120608
  Serious: Yes (Other)
  Sender: FDA-Public Use
  Company Number: US-BAYER-2012-004657

PATIENT
  Age: 83 Year
  Sex: Female
  Weight: 47.619 kg

DRUGS (2)
  1. CITRACAL PETITES [Suspect]
     Dosage: UNK, BOTTLE COUNT 200S
     Route: 048
     Dates: start: 20100101, end: 20100101
  2. CITRACAL [Suspect]
     Dosage: UNK
     Route: 048
     Dates: start: 20100101, end: 20100101

REACTIONS (1)
  - CHOKING [None]
